FAERS Safety Report 23622544 (Version 2)
Quarter: 2025Q3

REPORT INFORMATION
  Report Type: Spontaneous
  Country: US (occurrence: US)
  Receive Date: 20240312
  Receipt Date: 20250811
  Transmission Date: 20251021
  Serious: No
  Sender: SANOFI AVENTIS
  Company Number: US-SA-2024SA077252

PATIENT
  Age: 59 Year
  Sex: Female

DRUGS (1)
  1. DUPIXENT [Suspect]
     Active Substance: DUPILUMAB
     Indication: Sinus polyp
     Dosage: 300 MG, QOW
     Route: 058

REACTIONS (4)
  - Eye disorder [Recovered/Resolved]
  - Injection site swelling [Recovered/Resolved]
  - Injection site pain [Unknown]
  - Incorrect route of product administration [Unknown]
